FAERS Safety Report 8582553 (Version 3)
Quarter: 2012Q4

REPORT INFORMATION
  Report Type: Spontaneous
  Country: DK (occurrence: None)
  Receive Date: 20120521
  Receipt Date: 20120927
  Transmission Date: 20130627
  Serious: Yes (Hospitalization)
  Sender: FDA-Public Use
  Company Number: 2012MA006134

PATIENT
  Age: 73 Year
  Sex: Male

DRUGS (3)
  1. NAPROXEN [Suspect]
     Indication: ARTHRITIS
     Dosage: 500 MG;BID;PO
     Route: 048
     Dates: start: 20120401, end: 20120422
  2. ACETAMINOPHEN AND CODEINE PHOSPHATE [Concomitant]
  3. LOW MOLECULAR WEIGHT HEPARIN [Concomitant]

REACTIONS (9)
  - Lethargy [None]
  - Dizziness [None]
  - Abdominal pain [None]
  - Presyncope [None]
  - Pallor [None]
  - Faeces discoloured [None]
  - Haemoglobin decreased [None]
  - International normalised ratio decreased [None]
  - Duodenal ulcer haemorrhage [None]
